FAERS Safety Report 12321433 (Version 1)
Quarter: 2016Q2

REPORT INFORMATION
  Report Type: Spontaneous
  Country: US (occurrence: US)
  Receive Date: 20160502
  Receipt Date: 20160502
  Transmission Date: 20160815
  Serious: Yes (Hospitalization)
  Sender: FDA-Public Use
  Company Number: US-BEH-2016061686

PATIENT
  Sex: Female
  Weight: 63 kg

DRUGS (16)
  1. ISOSORBIDE. [Concomitant]
     Active Substance: ISOSORBIDE
  2. EPIPEN [Concomitant]
     Active Substance: EPINEPHRINE
  3. LAMICTAL [Concomitant]
     Active Substance: LAMOTRIGINE
  4. LIDOCAINE. [Concomitant]
     Active Substance: LIDOCAINE
  5. AMOXICILLIN. [Concomitant]
     Active Substance: AMOXICILLIN
  6. FOSAMAX [Concomitant]
     Active Substance: ALENDRONATE SODIUM
  7. LATUDE [Concomitant]
  8. HIZENTRA [Suspect]
     Active Substance: HUMAN IMMUNOGLOBULIN G
     Indication: IMMUNODEFICIENCY COMMON VARIABLE
     Dosage: HIZENTRA 2 GM
     Route: 058
     Dates: start: 20130815
  9. AMLODIPINE [Concomitant]
     Active Substance: AMLODIPINE BESYLATE
  10. METFORMIN [Concomitant]
     Active Substance: METFORMIN HYDROCHLORIDE
  11. ACETAMINOPHEN. [Concomitant]
     Active Substance: ACETAMINOPHEN
  12. CYMBALTA [Concomitant]
     Active Substance: DULOXETINE HYDROCHLORIDE
  13. RITALIN [Concomitant]
     Active Substance: METHYLPHENIDATE HYDROCHLORIDE
  14. LIPITOR [Concomitant]
     Active Substance: ATORVASTATIN CALCIUM
  15. ASPIRIN. [Concomitant]
     Active Substance: ASPIRIN
  16. CYANOCOBALAMIN. [Concomitant]
     Active Substance: CYANOCOBALAMIN

REACTIONS (1)
  - Oral surgery [Unknown]
